FAERS Safety Report 8161432-1 (Version None)
Quarter: 2012Q1

REPORT INFORMATION
  Report Type: 
  Country: None (occurrence: None)
  Receive Date: 20120224
  Receipt Date: 20120214
  Transmission Date: 20120608
  Serious: Yes (Death, Other)
  Sender: FDA-Public Use
  Company Number: DE-BAYER-2012-017212

PATIENT

DRUGS (4)
  1. PHENPROCOUMON [Concomitant]
  2. REFLUDAN [Suspect]
     Indication: HEPARIN-INDUCED THROMBOCYTOPENIA
     Route: 042
  3. TICLOPIDIN [Concomitant]
  4. ASPIRIN [Concomitant]

REACTIONS (16)
  - MULTI-ORGAN FAILURE [None]
  - CARDIAC FAILURE [None]
  - MYOCARDIAL ISCHAEMIA [None]
  - RESPIRATORY DISORDER [None]
  - RENAL FAILURE [None]
  - HAEMORRHAGE INTRACRANIAL [None]
  - HAEMORRHAGE [None]
  - EMBOLISM [None]
  - SEPTIC SHOCK [None]
  - LIMB AMPUTATION [None]
  - PNEUMONIA [None]
  - HYPERSENSITIVITY [None]
  - SEPSIS [None]
  - VENTRICULAR FIBRILLATION [None]
  - SHOCK [None]
  - CEREBROVASCULAR ACCIDENT [None]
